FAERS Safety Report 24311997 (Version 1)
Quarter: 2024Q3

REPORT INFORMATION
  Report Type: Spontaneous
  Country: IN (occurrence: IN)
  Receive Date: 20240912
  Receipt Date: 20240912
  Transmission Date: 20241016
  Serious: Yes (Hospitalization, Other)
  Sender: NOVARTIS
  Company Number: IN-002147023-NVSC2024IN182113

PATIENT
  Age: 19 Year
  Sex: Female

DRUGS (4)
  1. SACUBITRIL\VALSARTAN [Suspect]
     Active Substance: SACUBITRIL\VALSARTAN
     Indication: Left ventricular dilatation
     Dosage: 25 MG, QD (DIVIDED IN 2 EQUAL DOSES GIVEN TWICE DAILY FOR 2 DAYS))
     Route: 065
  2. SACUBITRIL\VALSARTAN [Suspect]
     Active Substance: SACUBITRIL\VALSARTAN
     Indication: Ejection fraction
     Dosage: 50 MG, QD (R INCREASED ON THE THIRD DAY TO A 25-MG TWICE-DAILY DOSE)
     Route: 065
  3. SPIRONOLACTONE [Concomitant]
     Active Substance: SPIRONOLACTONE
     Indication: Product used for unknown indication
     Dosage: UNK
     Route: 065
  4. ASPIRIN [Concomitant]
     Active Substance: ASPIRIN
     Indication: Product used for unknown indication
     Dosage: UNK
     Route: 065

REACTIONS (2)
  - Dystonia [Recovering/Resolving]
  - Product use in unapproved indication [Unknown]
